FAERS Safety Report 16047927 (Version 1)
Quarter: 2019Q1

REPORT INFORMATION
  Report Type: Report from Study
  Country: US (occurrence: US)
  Receive Date: 20190307
  Receipt Date: 20190307
  Transmission Date: 20190418
  Serious: Yes (Hospitalization)
  Sender: FDA-Public Use
  Company Number: US-TAKEDA-2018TUS028821

PATIENT
  Age: 61 Year
  Sex: Male

DRUGS (1)
  1. PONATINIB [Suspect]
     Active Substance: PONATINIB
     Indication: ACUTE LYMPHOCYTIC LEUKAEMIA
     Dosage: 30 MILLIGRAM, QD
     Route: 048
     Dates: start: 20180912

REACTIONS (8)
  - Headache [Unknown]
  - Somnolence [Unknown]
  - Road traffic accident [Unknown]
  - Fatigue [Unknown]
  - Joint dislocation [Unknown]
  - Muscle spasms [Unknown]
  - Constipation [Unknown]
  - Blood pressure increased [Unknown]

NARRATIVE: CASE EVENT DATE: 20190302
